FAERS Safety Report 25100824 (Version 1)
Quarter: 2025Q1

REPORT INFORMATION
  Report Type: Spontaneous
  Country: DE (occurrence: DE)
  Receive Date: 20250320
  Receipt Date: 20250320
  Transmission Date: 20250409
  Serious: Yes (Hospitalization, Other)
  Sender: DAIICHI
  Company Number: DE-DSJP-DS-2025-129653-DE

PATIENT
  Sex: Male
  Weight: 73 kg

DRUGS (1)
  1. EDOXABAN TOSYLATE [Suspect]
     Active Substance: EDOXABAN TOSYLATE
     Indication: Atrial fibrillation
     Dosage: 60 MG, QD
     Route: 065

REACTIONS (3)
  - Lipoma [Unknown]
  - Wound infection [Not Recovered/Not Resolved]
  - Wound haematoma [Recovered/Resolved]

NARRATIVE: CASE EVENT DATE: 20241101
